FAERS Safety Report 13775776 (Version 1)
Quarter: 2017Q3

REPORT INFORMATION
  Report Type: Spontaneous
  Country: TH (occurrence: TH)
  Receive Date: 20170721
  Receipt Date: 20170721
  Transmission Date: 20171127
  Serious: Yes (Other)
  Sender: FDA-Public Use
  Company Number: TH-BAYER-2017-132869

PATIENT
  Age: 51 Year
  Sex: Female

DRUGS (5)
  1. STIVARGA [Suspect]
     Active Substance: REGORAFENIB
     Indication: RECTAL CANCER METASTATIC
     Dosage: 120 MG, DAILY
     Dates: start: 201410, end: 201501
  2. CORTISONE ACETATE. [Concomitant]
     Active Substance: CORTISONE ACETATE
     Dosage: DAILY DOSE 100 MG
  3. TETRACYCLINE [Concomitant]
     Active Substance: TETRACYCLINE
     Dosage: DAILY DOSE 100 MG
  4. STIVARGA [Suspect]
     Active Substance: REGORAFENIB
     Indication: RECTAL CANCER METASTATIC
     Dosage: 160 MG, DAILY X  2 WEEKS
     Dates: start: 201408, end: 201409
  5. STIVARGA [Suspect]
     Active Substance: REGORAFENIB
     Indication: RECTAL CANCER METASTATIC
     Dosage: 80 MG, DAILY
     Dates: start: 201501

REACTIONS (7)
  - Palmar-plantar erythrodysaesthesia syndrome [None]
  - Mucosal inflammation [None]
  - Rash [None]
  - Disease progression [None]
  - Hypertension [None]
  - Fatigue [None]
  - Pyrexia [None]

NARRATIVE: CASE EVENT DATE: 201409
